FAERS Safety Report 16579533 (Version 3)
Quarter: 2019Q3

REPORT INFORMATION
  Report Type: Spontaneous
  Country: US (occurrence: US)
  Receive Date: 20190716
  Receipt Date: 20190911
  Transmission Date: 20191004
  Serious: No
  Sender: FDA-Public Use
  Company Number: US-ACTELION-A-US2019-192861

PATIENT
  Age: 16 Year
  Sex: Male
  Weight: 72.11 kg

DRUGS (6)
  1. UPTRAVI [Suspect]
     Active Substance: SELEXIPAG
     Dosage: 800 MCG, BID
     Route: 048
     Dates: start: 201905
  2. COUMADIN [Concomitant]
     Active Substance: WARFARIN SODIUM
  3. AMBRISENTAN [Suspect]
     Active Substance: AMBRISENTAN
     Indication: PRODUCT USED FOR UNKNOWN INDICATION
     Dosage: 5 MG, QD
     Route: 048
     Dates: start: 20180809
  4. TYVASO [Concomitant]
     Active Substance: TREPROSTINIL
  5. UPTRAVI [Suspect]
     Active Substance: SELEXIPAG
     Indication: PRODUCT USED FOR UNKNOWN INDICATION
     Dosage: 400 MCG, BID
     Route: 048
  6. ADCIRCA [Concomitant]
     Active Substance: TADALAFIL

REACTIONS (5)
  - Product use issue [Not Recovered/Not Resolved]
  - Diarrhoea [Unknown]
  - Muscle spasms [Unknown]
  - Pain in jaw [Unknown]
  - Headache [Recovered/Resolved]

NARRATIVE: CASE EVENT DATE: 20190602
